FAERS Safety Report 24849178 (Version 1)
Quarter: 2025Q1

REPORT INFORMATION
  Report Type: Spontaneous
  Country: US (occurrence: US)
  Receive Date: 20250116
  Receipt Date: 20250116
  Transmission Date: 20250408
  Serious: Yes (Life-Threatening, Disabling, Other)
  Sender: ALEXION PHARMACEUTICALS
  Company Number: US-AstraZeneca-CH-00785191A

PATIENT
  Weight: 70.306 kg

DRUGS (6)
  1. SEROQUEL XR [Suspect]
     Active Substance: QUETIAPINE FUMARATE
     Indication: Somnolence
     Dosage: UNK MILLIGRAM, QHS
  2. SEROQUEL XR [Suspect]
     Active Substance: QUETIAPINE FUMARATE
     Dosage: UNK MILLIGRAM, QHS
     Route: 048
  3. SEROQUEL XR [Suspect]
     Active Substance: QUETIAPINE FUMARATE
     Dosage: UNK MILLIGRAM, QHS
  4. SEROQUEL XR [Suspect]
     Active Substance: QUETIAPINE FUMARATE
     Dosage: UNK MILLIGRAM, QHS
     Route: 048
  5. SEROQUEL [Concomitant]
     Active Substance: QUETIAPINE FUMARATE
     Indication: Somnolence
     Dosage: UNK UNK, BID
     Route: 048
  6. SEROQUEL [Concomitant]
     Active Substance: QUETIAPINE FUMARATE
     Dosage: UNK UNK, BID

REACTIONS (7)
  - Metabolic syndrome [Recovering/Resolving]
  - Quality of life decreased [Unknown]
  - Diabetes mellitus [Recovering/Resolving]
  - Hypertension [Recovering/Resolving]
  - Blood triglycerides increased [Recovering/Resolving]
  - Pain [Recovering/Resolving]
  - Fibromyalgia [Recovering/Resolving]
